FAERS Safety Report 7966114-4 (Version None)
Quarter: 2011Q4

REPORT INFORMATION
  Report Type: 
  Country: None (occurrence: None)
  Receive Date: 20111208
  Receipt Date: 20111126
  Transmission Date: 20120403
  Serious: Yes (Hospitalization)
  Sender: FDA-Public Use
  Company Number: PHHY2011DE103724

PATIENT
  Sex: Male
  Weight: 50 kg

DRUGS (8)
  1. OMEPRAZOLE [Suspect]
     Dosage: UNK UKN, UNK
  2. ALLOPURINOL [Suspect]
     Dosage: UNK UKN, UNK
  3. SYMBICORT [Suspect]
     Dosage: UNK UKN, UNK
  4. LEVOTHYROXINE SODIUM [Suspect]
     Dosage: 25 DF, UNK
     Route: 048
  5. ASPIRIN [Suspect]
     Dosage: 9 DF, UNK
     Route: 048
  6. ACETAMINOPHEN [Suspect]
     Dosage: 14 DF, UNK
     Route: 048
  7. ETILEFRINE [Suspect]
     Dosage: 15 ML, UNK
     Route: 048
  8. VALSARTAN  AND HYDROCHLOROTHIAZIDE [Suspect]
     Dosage: 9 DF, UNK
     Route: 048

REACTIONS (4)
  - OVERDOSE [None]
  - HYPOTHERMIA [None]
  - SUICIDE ATTEMPT [None]
  - SOMNOLENCE [None]
